FAERS Safety Report 7600649-9 (Version None)
Quarter: 2011Q3

REPORT INFORMATION
  Report Type: 
  Country: None (occurrence: None)
  Receive Date: 20110706
  Receipt Date: 20110706
  Transmission Date: 20111222
  Serious: No
  Sender: FDA-Public Use
  Company Number: None

PATIENT
  Sex: Female
  Weight: 56.246 kg

DRUGS (1)
  1. COZAAR [Suspect]
     Indication: DRUG THERAPY CHANGED
     Dosage: 1 TAB. DAILY
     Dates: start: 20110608

REACTIONS (1)
  - MOUTH HAEMORRHAGE [None]
